FAERS Safety Report 6312791-3 (Version None)
Quarter: 2009Q3

REPORT INFORMATION
  Report Type: 
  Country: None (occurrence: None)
  Receive Date: 20090814
  Receipt Date: 20090806
  Transmission Date: 20100115
  Serious: Yes (Hospitalization)
  Sender: FDA-Public Use
  Company Number: 2009US002736

PATIENT
  Age: 67 Year
  Sex: Female
  Weight: 110.7 kg

DRUGS (9)
  1. LEXISCAN [Suspect]
     Indication: SCAN MYOCARDIAL PERFUSION
     Dosage: 0.4 MG, TOTAL DOSE, IV NOS
     Route: 042
     Dates: start: 20090709, end: 20090709
  2. CRESTOR [Concomitant]
  3. ENALAPRIL MALEATE [Concomitant]
  4. IMDUR [Concomitant]
  5. LASIX [Concomitant]
  6. METOPROLOL SUCCINATE [Concomitant]
  7. NITROGLYCERIN [Concomitant]
  8. SILVADENE [Concomitant]
  9. LEVAQUIN [Concomitant]

REACTIONS (4)
  - CARDIAC FAILURE CONGESTIVE [None]
  - CORONARY ARTERY DISEASE [None]
  - MYOCARDIAL ISCHAEMIA [None]
  - VENTRICULAR EXTRASYSTOLES [None]
